FAERS Safety Report 10143671 (Version 1)
Quarter: 2014Q2

REPORT INFORMATION
  Report Type: Spontaneous
  Country: US (occurrence: US)
  Receive Date: 20140430
  Receipt Date: 20140430
  Transmission Date: 20141212
  Serious: Yes (Death, Other)
  Sender: FDA-Public Use
  Company Number: US-PFIZER INC-2014117982

PATIENT
  Age: 20 Year
  Sex: Female

DRUGS (5)
  1. MORPHINE SULFATE [Suspect]
     Dosage: UNK
     Route: 065
  2. OXYCODONE [Suspect]
     Dosage: UNK
     Route: 065
  3. HYDROCODONE [Suspect]
     Dosage: UNK
     Route: 065
  4. DEXTROMETHORPHAN [Suspect]
     Dosage: UNK
     Route: 065
  5. HEROIN [Suspect]
     Indication: DRUG ABUSE
     Route: 065

REACTIONS (2)
  - Overdose [Fatal]
  - Substance abuse [Fatal]
